FAERS Safety Report 9803840 (Version 1)
Quarter: 2014Q1

REPORT INFORMATION
  Report Type: Spontaneous
  Country: US (occurrence: US)
  Receive Date: 20140108
  Receipt Date: 20140108
  Transmission Date: 20141002
  Serious: No
  Sender: FDA-Public Use
  Company Number: US-GLAXOSMITHKLINE-A1046710A

PATIENT
  Age: 77 Year
  Sex: Male

DRUGS (9)
  1. LOVAZA [Suspect]
     Indication: BLOOD CHOLESTEROL INCREASED
     Dosage: 5CAP PER DAY
     Route: 048
     Dates: start: 2010
  2. LISINOPRIL [Concomitant]
  3. CITALOPRAM [Concomitant]
  4. NORVASC [Concomitant]
  5. DIGOXIN [Concomitant]
  6. SPIRONOLACTONE [Concomitant]
  7. TOPROL [Concomitant]
  8. FLAXSEED [Concomitant]
  9. LUTEIN [Concomitant]

REACTIONS (2)
  - Wrong technique in drug usage process [Recovering/Resolving]
  - Therapeutic response delayed [Unknown]
